FAERS Safety Report 5185580-3 (Version None)
Quarter: 2006Q4

REPORT INFORMATION
  Report Type: 
  Country: None (occurrence: None)
  Receive Date: 20061220
  Receipt Date: 20060809
  Transmission Date: 20070319
  Serious: No
  Sender: FDA-Public Use
  Company Number: US-GLAXOSMITHKLINE-A0616172A

PATIENT
  Age: 33 Year
  Sex: Female

DRUGS (1)
  1. MEMBERS MARK NTS ORIGINAL, 21MG [Suspect]
     Dates: start: 20060803, end: 20060807

REACTIONS (7)
  - BLOOD PRESSURE INCREASED [None]
  - DIZZINESS [None]
  - DYSPHAGIA [None]
  - FEELING ABNORMAL [None]
  - HYPOAESTHESIA ORAL [None]
  - NONSPECIFIC REACTION [None]
  - THROAT TIGHTNESS [None]
